FAERS Safety Report 20226981 (Version 1)
Quarter: 2021Q4

REPORT INFORMATION
  Report Type: Spontaneous
  Country: US (occurrence: US)
  Receive Date: 20211224
  Receipt Date: 20211224
  Transmission Date: 20220303
  Serious: Yes (Death, Other)
  Sender: FDA-Public Use
  Company Number: US-009507513-2112USA006935

PATIENT
  Age: 66 Year
  Sex: Female

DRUGS (6)
  1. PRINIVIL [Suspect]
     Active Substance: LISINOPRIL
     Route: 048
  2. AMLODIPINE [Suspect]
     Active Substance: AMLODIPINE BESYLATE
     Route: 048
  3. FAMOTIDINE [Suspect]
     Active Substance: FAMOTIDINE
     Route: 048
  4. QUETIAPINE [Suspect]
     Active Substance: QUETIAPINE
     Route: 048
  5. GABAPENTIN [Suspect]
     Active Substance: GABAPENTIN
     Route: 048
  6. ALPRAZOLAM [Suspect]
     Active Substance: ALPRAZOLAM
     Route: 048

REACTIONS (1)
  - Suspected suicide [Fatal]
